FAERS Safety Report 22251138 (Version 1)
Quarter: 2023Q2

REPORT INFORMATION
  Report Type: Spontaneous
  Country: US (occurrence: None)
  Receive Date: 20230424
  Receipt Date: 20230424
  Transmission Date: 20230722
  Serious: Yes (Other)
  Sender: FDA-Public Use
  Company Number: None

PATIENT
  Age: 77 Year
  Sex: Female
  Weight: 84.82 kg

DRUGS (20)
  1. ASPIRIN [Suspect]
     Active Substance: ASPIRIN
     Indication: Anticoagulant therapy
     Dosage: FREQUENCY : DAILY;?
     Route: 048
     Dates: start: 202112, end: 202212
  2. ALBUTEROL [Concomitant]
     Active Substance: ALBUTEROL
  3. AMLODIPINE [Concomitant]
     Active Substance: AMLODIPINE BESYLATE
  4. ATORVASTATIN [Concomitant]
     Active Substance: ATORVASTATIN
  5. BLOOD GLUCOSE METER [Concomitant]
  6. CINNAMON\HERBALS [Concomitant]
     Active Substance: CINNAMON\HERBALS
  7. DICLOFENAC SODIUM [Concomitant]
     Active Substance: DICLOFENAC SODIUM
  8. DORZOLAMIDE [Concomitant]
     Active Substance: DORZOLAMIDE
  9. GLUCOSE BLOOD [Concomitant]
  10. ESOMEPRAZOLE [Concomitant]
     Active Substance: ESOMEPRAZOLE
  11. FLUTICASONE PROPIONATE [Concomitant]
     Active Substance: FLUTICASONE PROPIONATE
  12. FUROSEMIDE [Concomitant]
     Active Substance: FUROSEMIDE
  13. GABAPENTIN [Concomitant]
     Active Substance: GABAPENTIN
  14. INSULIN ASPARTATE-100 [Concomitant]
  15. INSULIN GLARGINE [Concomitant]
     Active Substance: INSULIN GLARGINE
  16. IRBESARTAN [Concomitant]
     Active Substance: IRBESARTAN
  17. ASCORBIC ACID [Concomitant]
     Active Substance: ASCORBIC ACID
  18. ASPIRIN [Concomitant]
     Active Substance: ASPIRIN
  19. CHOLECALIFEROL [Concomitant]
  20. HYDROCORTISONE [Concomitant]
     Active Substance: HYDROCORTISONE

REACTIONS (2)
  - Hypoacusis [None]
  - Tinnitus [None]

NARRATIVE: CASE EVENT DATE: 20221201
